FAERS Safety Report 20086670 (Version 2)
Quarter: 2021Q4

REPORT INFORMATION
  Report Type: Spontaneous
  Country: PT (occurrence: None)
  Receive Date: 20211118
  Receipt Date: 20211207
  Transmission Date: 20220303
  Serious: Yes (Hospitalization, Other)
  Sender: FDA-Public Use
  Company Number: PT-Hikma Pharmaceuticals-PT-H14001-21-04850

PATIENT
  Age: 54 Year
  Sex: Female

DRUGS (1)
  1. ZOLEDRONIC ACID [Suspect]
     Active Substance: ZOLEDRONIC ACID
     Indication: Metastatic neoplasm
     Dosage: UNKNOWN
     Route: 065

REACTIONS (10)
  - Glomerulonephritis membranoproliferative [Unknown]
  - Mesangioproliferative glomerulonephritis [Unknown]
  - IgA nephropathy [Unknown]
  - Pyelonephritis acute [Unknown]
  - Tubulointerstitial nephritis [Unknown]
  - Renal tubular atrophy [Unknown]
  - Renal tubular dysfunction [Unknown]
  - Renal impairment [Unknown]
  - Toxicity to various agents [Unknown]
  - Chronic kidney disease [Recovering/Resolving]
